FAERS Safety Report 21018930 (Version 1)
Quarter: 2022Q2

REPORT INFORMATION
  Report Type: Spontaneous
  Country: US (occurrence: None)
  Receive Date: 20220628
  Receipt Date: 20220628
  Transmission Date: 20220721
  Serious: No
  Sender: FDA-Public Use
  Company Number: US-MIMS-CORIMC-678

PATIENT
  Age: 12 Year
  Sex: Male

DRUGS (1)
  1. AZSTARYS [Suspect]
     Active Substance: DEXMETHYLPHENIDATE HYDROCHLORIDE\SERDEXMETHYLPHENIDATE CHLORIDE
     Indication: Attention deficit hyperactivity disorder
     Dosage: UNK, QD
     Route: 048
     Dates: start: 202202

REACTIONS (5)
  - Ear infection [Unknown]
  - Abdominal pain upper [Unknown]
  - Headache [Unknown]
  - Insomnia [Unknown]
  - Decreased appetite [Unknown]
